FAERS Safety Report 8231632-0 (Version None)
Quarter: 2012Q1

REPORT INFORMATION
  Report Type: 
  Country: None (occurrence: None)
  Receive Date: 20120323
  Receipt Date: 20120313
  Transmission Date: 20120608
  Serious: Yes (Other)
  Sender: FDA-Public Use
  Company Number: US-ELI_LILLY_AND_COMPANY-US201201004388

PATIENT
  Sex: Female

DRUGS (2)
  1. FORTEO [Suspect]
     Indication: OSTEOPOROSIS
     Dosage: 20 UG, QD
     Dates: start: 20111128
  2. FORTEO [Suspect]
     Dosage: 20 UG, QD

REACTIONS (4)
  - HAEMOPTYSIS [None]
  - EPISTAXIS [None]
  - THYROID NEOPLASM [None]
  - DYSGEUSIA [None]
